FAERS Safety Report 9861979 (Version 1)
Quarter: 2014Q1

REPORT INFORMATION
  Report Type: Spontaneous
  Country: SE (occurrence: SE)
  Receive Date: 20140203
  Receipt Date: 20140203
  Transmission Date: 20141002
  Serious: Yes (Hospitalization)
  Sender: FDA-Public Use
  Company Number: SE-JNJFOC-20140113863

PATIENT
  Sex: Male
  Weight: 3 kg

DRUGS (8)
  1. REMICADE [Suspect]
     Indication: CROHN^S DISEASE
     Route: 064
     Dates: start: 20120720
  2. REMICADE [Suspect]
     Indication: CROHN^S DISEASE
     Route: 064
     Dates: start: 201204
  3. REMICADE [Suspect]
     Indication: COLITIS ULCERATIVE
     Route: 064
     Dates: start: 201204
  4. REMICADE [Suspect]
     Indication: COLITIS ULCERATIVE
     Route: 064
     Dates: start: 20120720
  5. ASACOL [Suspect]
     Indication: CROHN^S DISEASE
     Dosage: 3+0+3
     Route: 064
  6. IMUREL [Suspect]
     Indication: CROHN^S DISEASE
     Dosage: 3+0+3
     Route: 064
  7. NITROUS OXIDE [Suspect]
     Indication: PRODUCT USED FOR UNKNOWN INDICATION
     Route: 064
  8. MORPHINE [Suspect]
     Indication: POSTPARTUM STATE
     Route: 064

REACTIONS (3)
  - Investigation [Unknown]
  - Exposure during breast feeding [Unknown]
  - Foetal exposure during pregnancy [Recovered/Resolved]
